FAERS Safety Report 26199800 (Version 1)
Quarter: 2025Q4

REPORT INFORMATION
  Report Type: Spontaneous
  Country: US (occurrence: US)
  Receive Date: 20251225
  Receipt Date: 20251225
  Transmission Date: 20260118
  Serious: No
  Sender: ROCHE
  Company Number: US-ROCHE-10000466050

PATIENT
  Age: 1 Year
  Sex: Male

DRUGS (2)
  1. HEMLIBRA [Suspect]
     Active Substance: EMICIZUMAB-KXWH
     Indication: Factor VIII deficiency
     Dosage: STRENGTH: 105MG / 0.7 ML
     Route: 058
     Dates: start: 202410
  2. NOVOEIGHT INJ [Concomitant]

REACTIONS (4)
  - Haemorrhage [Recovered/Resolved]
  - Fall [Unknown]
  - Mouth injury [Unknown]
  - Lip injury [Unknown]

NARRATIVE: CASE EVENT DATE: 20251214
